FAERS Safety Report 12385806 (Version 1)
Quarter: 2016Q2

REPORT INFORMATION
  Report Type: Spontaneous
  Country: US (occurrence: US)
  Receive Date: 20160519
  Receipt Date: 20160519
  Transmission Date: 20160815
  Serious: No
  Sender: FDA-Public Use
  Company Number: US-MALLINCKRODT-T201601324

PATIENT
  Age: 67 Year
  Sex: Female
  Weight: 80 kg

DRUGS (16)
  1. GLYCOPYRROLATE. [Concomitant]
     Active Substance: GLYCOPYRROLATE
     Dosage: UNK
  2. EFFEXOR [Concomitant]
     Active Substance: VENLAFAXINE HYDROCHLORIDE
     Dosage: 37.5MG QD
  3. NEXIUM [Concomitant]
     Active Substance: ESOMEPRAZOLE MAGNESIUM
     Dosage: 40MG
  4. PLAVIX [Concomitant]
     Active Substance: CLOPIDOGREL BISULFATE
     Dosage: 75MG QD
  5. PRAVASTATIN [Concomitant]
     Active Substance: PRAVASTATIN\PRAVASTATIN SODIUM
     Dosage: 80MG
  6. ACETAMINOPHEN\HYDROCODONE BITARTRATE [Suspect]
     Active Substance: ACETAMINOPHEN\HYDROCODONE BITARTRATE
     Indication: RHEUMATOID ARTHRITIS
     Dosage: 1 QID PRN (I TAKE ONE AT BEDTIME NORMALLY)
     Route: 048
     Dates: start: 2014, end: 201603
  7. FLECAINIDE [Concomitant]
     Active Substance: FLECAINIDE
     Dosage: 50MG
  8. REMICADE [Concomitant]
     Active Substance: INFLIXIMAB
     Dosage: Q 7 WEEKS
  9. CICLOPIROX. [Concomitant]
     Active Substance: CICLOPIROX
     Route: 061
  10. MOBIC [Concomitant]
     Active Substance: MELOXICAM
     Dosage: UNK
  11. VIVELLE-DOT [Concomitant]
     Active Substance: ESTRADIOL
     Dosage: 0.0375MG PRN
  12. PRADAXA [Concomitant]
     Active Substance: DABIGATRAN ETEXILATE MESYLATE
     Dosage: 150MG BID
  13. TACLONEX [Concomitant]
     Active Substance: BETAMETHASONE DIPROPIONATE\CALCIPOTRIENE\CALCIPOTRIENE HYDRATE
     Dosage: UNK
  14. METOPROLOL. [Concomitant]
     Active Substance: METOPROLOL
     Dosage: 12.5MG
  15. ALPRAZOLAM. [Concomitant]
     Active Substance: ALPRAZOLAM
     Dosage: 0.5MG, 3HS
  16. MVI [Concomitant]
     Active Substance: VITAMINS

REACTIONS (3)
  - Poor quality sleep [Recovered/Resolved]
  - Unevaluable event [Not Recovered/Not Resolved]
  - Panic attack [Recovered/Resolved]

NARRATIVE: CASE EVENT DATE: 201603
